FAERS Safety Report 23185431 (Version 2)
Quarter: 2023Q4

REPORT INFORMATION
  Report Type: Report from Study
  Country: MA (occurrence: MA)
  Receive Date: 20231115
  Receipt Date: 20231120
  Transmission Date: 20240110
  Serious: Yes (Death)
  Sender: FDA-Public Use
  Company Number: MA-002147023-NVSC2023MA242929

PATIENT
  Sex: Male

DRUGS (3)
  1. AFINITOR [Suspect]
     Active Substance: EVEROLIMUS
     Indication: Leukaemia
     Dosage: 5 MG
     Route: 048
  2. AFINITOR [Suspect]
     Active Substance: EVEROLIMUS
     Dosage: 1 DOSAGE FORM, BID, (ONE TABLET IN THE MORNING AND 1 TABLET IN THE EVENING)
     Route: 065
  3. AFINITOR [Suspect]
     Active Substance: EVEROLIMUS
     Dosage: 2 DOSAGE FORM, QD
     Route: 065

REACTIONS (5)
  - Leukaemia [Fatal]
  - Angina pectoris [Fatal]
  - Coronary artery occlusion [Fatal]
  - Dizziness [Unknown]
  - Product use in unapproved indication [Unknown]
